FAERS Safety Report 7405598-7 (Version None)
Quarter: 2011Q2

REPORT INFORMATION
  Report Type: 
  Country: None (occurrence: None)
  Receive Date: 20110411
  Receipt Date: 20110329
  Transmission Date: 20111010
  Serious: Yes (Other)
  Sender: FDA-Public Use
  Company Number: PHHO2011US06170

PATIENT
  Age: 71 Year
  Sex: Female
  Weight: 67 kg

DRUGS (14)
  1. LORAZEPAM [Concomitant]
  2. SYNTHROID [Concomitant]
     Indication: HYPOTHYROIDISM
  3. DIOVAN [Suspect]
     Indication: HYPERTENSION
     Dosage: 160 MG, QD
     Route: 048
     Dates: start: 20110207
  4. MUCINEX [Concomitant]
  5. FOLIC ACID [Concomitant]
  6. VITAMIN D [Concomitant]
  7. ESTRING [Concomitant]
  8. ALEVE [Concomitant]
  9. TRIAMCINOLONE [Concomitant]
  10. ALISKIREN [Suspect]
     Indication: HYPERTENSION
     Dosage: 300 MG, QD
     Route: 048
     Dates: start: 20100501
  11. UBIDECARENONE [Concomitant]
  12. ZYRTEC [Concomitant]
  13. AVAPRO [Concomitant]
  14. SIMVASTATIN [Concomitant]

REACTIONS (1)
  - HYPONATRAEMIA [None]
